FAERS Safety Report 7562867-8 (Version None)
Quarter: 2011Q2

REPORT INFORMATION
  Report Type: 
  Country: None (occurrence: None)
  Receive Date: 20110622
  Receipt Date: 20110607
  Transmission Date: 20111010
  Serious: Yes (Hospitalization)
  Sender: FDA-Public Use
  Company Number: US-ROCHE-773054

PATIENT
  Sex: Female
  Weight: 138.3 kg

DRUGS (5)
  1. BEVACIZUMAB [Suspect]
     Indication: BREAST CANCER
     Dosage: OVER 30-90 MINUTES ON DAY 1.TOTAL DOSE ADMINISTERED: 1386 MG.
     Route: 042
     Dates: start: 20101229
  2. DOXORUBICIN HCL [Suspect]
     Indication: BREAST CANCER
     Dosage: IVP ON DAY 1. TOTAL DOSE ADMINISTERED: 136 MG.
     Route: 042
     Dates: start: 20101229
  3. PEGFILGRASTIM [Suspect]
     Indication: BREAST CANCER
     Dosage: ON DAY 2, EVERY 14 DAYS DURING CYCLES 1-4.
     Route: 058
     Dates: start: 20101229
  4. PACLITAXEL [Suspect]
     Indication: BREAST CANCER
     Dosage: OVER 1 HOUR ON DAYS 1,8 AND 15, EVERY 21 DAYS DURING CYCLES 5-8.
     Route: 042
     Dates: start: 20101229
  5. CYCLOPHOSPHAMIDE [Suspect]
     Indication: BREAST CANCER
     Dosage: OVER 20-30 MINUTES ON DAY 1. TOTAL DOSE ADMINISTERED: 1360 MG
     Route: 042
     Dates: start: 20101229

REACTIONS (6)
  - ABDOMINAL HERNIA [None]
  - VOMITING [None]
  - NAUSEA [None]
  - ABDOMINAL PAIN [None]
  - WOUND DEHISCENCE [None]
  - GASTROINTESTINAL ANASTOMOTIC LEAK [None]
